FAERS Safety Report 6278644-4 (Version None)
Quarter: 2009Q3

REPORT INFORMATION
  Report Type: 
  Country: None (occurrence: None)
  Receive Date: 20090722
  Receipt Date: 20090505
  Transmission Date: 20100115
  Serious: No
  Sender: FDA-Public Use
  Company Number: US-BAUSCH-2009BL002249

PATIENT
  Sex: Male

DRUGS (1)
  1. OPCON-A [Suspect]
     Indication: DRUG USE FOR UNKNOWN INDICATION
     Route: 047

REACTIONS (2)
  - CONDITION AGGRAVATED [None]
  - EYE IRRITATION [None]
